FAERS Safety Report 11196213 (Version 1)
Quarter: 2015Q2

REPORT INFORMATION
  Report Type: Spontaneous
  Country: US (occurrence: US)
  Receive Date: 20150617
  Receipt Date: 20150617
  Transmission Date: 20150821
  Serious: Yes (Other)
  Sender: FDA-Public Use
  Company Number: US-PFIZER INC-2015199693

PATIENT
  Age: 48 Year
  Sex: Male
  Weight: 134 kg

DRUGS (1)
  1. CHANTIX [Suspect]
     Active Substance: VARENICLINE TARTRATE
     Indication: SMOKING CESSATION THERAPY
     Dosage: UNK
     Dates: start: 2008, end: 2008

REACTIONS (2)
  - Dyspnoea [Unknown]
  - Infection [Unknown]

NARRATIVE: CASE EVENT DATE: 2015
